FAERS Safety Report 24832347 (Version 3)
Quarter: 2025Q1

REPORT INFORMATION
  Report Type: Spontaneous
  Country: AU (occurrence: AU)
  Receive Date: 20250110
  Receipt Date: 20250225
  Transmission Date: 20250409
  Serious: Yes (Other)
  Sender: NOVARTIS
  Company Number: AU-002147023-NVSC2025AU002851

PATIENT
  Sex: Male
  Weight: 80.8 kg

DRUGS (2)
  1. ENTRESTO [Suspect]
     Active Substance: SACUBITRIL\VALSARTAN
     Indication: Cardiac failure
     Dosage: UNK, BID
     Route: 048
     Dates: start: 2024, end: 2024
  2. RAMIPRIL [Suspect]
     Active Substance: RAMIPRIL
     Indication: Product used for unknown indication
     Dosage: UNK, QD
     Route: 048
     Dates: start: 2024

REACTIONS (6)
  - Heart failure with reduced ejection fraction [Recovering/Resolving]
  - Dizziness [Recovering/Resolving]
  - Contraindicated product administered [Unknown]
  - Blood pressure abnormal [Unknown]
  - Headache [Unknown]
  - Off label use [Unknown]

NARRATIVE: CASE EVENT DATE: 20240101
